FAERS Safety Report 6027627-8 (Version None)
Quarter: 2009Q1

REPORT INFORMATION
  Report Type: 
  Country: None (occurrence: None)
  Receive Date: 20090105
  Receipt Date: 20080717
  Transmission Date: 20090719
  Serious: No
  Sender: FDA-Public Use
  Company Number: US-BAYER-200812946BCC

PATIENT
  Sex: Female

DRUGS (1)
  1. MIDOL [Suspect]
     Indication: DYSMENORRHOEA
     Dates: start: 20080716

REACTIONS (1)
  - MALAISE [None]
